FAERS Safety Report 5648402-X (Version None)
Quarter: 2008Q1

REPORT INFORMATION
  Report Type: 
  Country: None (occurrence: None)
  Receive Date: 20080131
  Receipt Date: 20070928
  Transmission Date: 20080703
  Serious: No
  Sender: FDA-Public Use
  Company Number: 2005PV004701

PATIENT
  Age: 62 Year
  Sex: Male
  Weight: 180.1 kg

DRUGS (3)
  1. EXENATIDE (EXENATIDE)PEN, DISPOSABLE [Suspect]
     Indication: TYPE 2 DIABETES MELLITUS
     Dosage: 5 , 10 UG, 2/D, SUBCUTANEOUS
     Route: 058
     Dates: start: 20051117
  2. EXENATIDE (EXENATIDE)PEN, DISPOSABLE [Suspect]
  3. GLUCOPHAGE EXENATIDE PEN, DISPOSABLE DEVICE (EXENATIDE PEN) [Concomitant]

REACTIONS (2)
  - DECREASED APPETITE [None]
  - WEIGHT DECREASED [None]
